FAERS Safety Report 11863097 (Version 1)
Quarter: 2015Q4

REPORT INFORMATION
  Report Type: Spontaneous
  Country: IT (occurrence: IT)
  Receive Date: 20151223
  Receipt Date: 20151223
  Transmission Date: 20160305
  Serious: Yes (Other)
  Sender: FDA-Public Use
  Company Number: PHHY2015IT167118

PATIENT
  Age: 3 Year
  Sex: Male

DRUGS (2)
  1. TOPOTECAN [Suspect]
     Active Substance: TOPOTECAN\TOPOTECAN HYDROCHLORIDE
     Indication: RETINOBLASTOMA
     Dosage: 0.4 UG, SIX INFUSIONS
     Route: 031
  2. MELPHALAN [Suspect]
     Active Substance: MELPHALAN
     Indication: RETINOBLASTOMA
     Dosage: 5 UG, SIX INFUSIONS
     Route: 031

REACTIONS (6)
  - Lenticular opacities [Unknown]
  - Retinal vein thrombosis [Recovered/Resolved]
  - Hypotonia [Unknown]
  - Chorioretinal atrophy [Unknown]
  - Product use issue [Unknown]
  - Optic neuritis [Recovered/Resolved]
